FAERS Safety Report 21383860 (Version 1)
Quarter: 2022Q3

REPORT INFORMATION
  Report Type: Spontaneous
  Country: DE (occurrence: DE)
  Receive Date: 20220928
  Receipt Date: 20220928
  Transmission Date: 20221026
  Serious: Yes (Hospitalization)
  Sender: FDA-Public Use
  Company Number: DE-ADRED-05713-01

PATIENT
  Age: 65 Year
  Sex: Male
  Weight: 80 kg

DRUGS (7)
  1. VALPROIC ACID [Suspect]
     Active Substance: VALPROIC ACID
     Indication: Product used for unknown indication
     Dosage: 1 DOSAGE FORMS DAILY; 300 MG, 1-0-0-0, UNIT DOSE : 1 DF , FREQUENCY : OD, MEDICATION ERRORS
  2. VALPROIC ACID [Suspect]
     Active Substance: VALPROIC ACID
     Dosage: 500 MG, 1-0-0-2, MEDICATION ERRORS
  3. QUETIAPINE [Suspect]
     Active Substance: QUETIAPINE
     Indication: Product used for unknown indication
     Dosage: 1 DOSAGE FORMS DAILY; 200 MG, 0-0-1-0, UNIT DOSE : 1 DF , FREQUENCY : OD, MEDICATION ERRORS
  4. QUETIAPINE [Suspect]
     Active Substance: QUETIAPINE
     Dosage: 1 DOSAGE FORMS DAILY; 50 MG, 0-0-1-0, UNIT DOSE : 1 DF , FREQUENCY : OD, MEDICATION ERRORS
  5. RAMIPRIL [Concomitant]
     Active Substance: RAMIPRIL
     Indication: Product used for unknown indication
     Dosage: 2 DOSAGE FORMS DAILY; 2.5 MG, 1-0-1-0, UNIT DOSE : 1 DF , FREQUENCY : BD
  6. ASPIRIN [Concomitant]
     Active Substance: ASPIRIN
     Indication: Product used for unknown indication
     Dosage: 1 DOSAGE FORMS DAILY; 100 MG, 0-1-0-0, UNIT DOSE : 1 DF , FREQUENCY : OD
  7. ATORVASTATIN [Concomitant]
     Active Substance: ATORVASTATIN
     Indication: Product used for unknown indication
     Dosage: 1 DOSAGE FORMS DAILY; 80 MG, 0-0-1-0, UNIT DOSE : 1 DF , FREQUENCY : OD

REACTIONS (3)
  - Restlessness [Unknown]
  - Mania [Unknown]
  - Product administration error [Unknown]
